FAERS Safety Report 7535343-6 (Version None)
Quarter: 2011Q2

REPORT INFORMATION
  Report Type: 
  Country: None (occurrence: None)
  Receive Date: 20110609
  Receipt Date: 20080411
  Transmission Date: 20111010
  Serious: Yes (Other)
  Sender: FDA-Public Use
  Company Number: PHFR2008IE01129

PATIENT
  Sex: Male

DRUGS (7)
  1. CLOZAPINE [Suspect]
     Indication: SCHIZOPHRENIA
     Route: 048
     Dates: start: 20080314
  2. LEVOTHYROXINE SODIUM [Concomitant]
     Dosage: 100 UG, UNK
     Route: 048
  3. TEMAZEPAM [Concomitant]
     Dosage: 20 MG, UNK
     Route: 048
     Dates: end: 20080402
  4. DIAZEPAM [Concomitant]
     Dosage: 15 MG, UNK
     Route: 048
     Dates: end: 20080313
  5. AMLODIPINE [Concomitant]
     Dosage: 5 MG, UNK
     Route: 048
  6. LIPITOR [Concomitant]
     Dosage: 20 MG, UNK
     Route: 048
  7. BIPERIDEN HYDROCHLORIDE TAB [Concomitant]
     Dosage: 8 MG, UNK
     Route: 048

REACTIONS (9)
  - ASTHENIA [None]
  - URINE OUTPUT INCREASED [None]
  - WHITE BLOOD CELL COUNT INCREASED [None]
  - NEUTROPHIL COUNT INCREASED [None]
  - URINARY TRACT INFECTION [None]
  - PROTEINURIA [None]
  - PYREXIA [None]
  - WHITE BLOOD CELLS URINE POSITIVE [None]
  - LEUKOCYTOSIS [None]
